FAERS Safety Report 23345573 (Version 1)
Quarter: 2023Q4

REPORT INFORMATION
  Report Type: Spontaneous
  Country: FR (occurrence: FR)
  Receive Date: 20231228
  Receipt Date: 20231228
  Transmission Date: 20240109
  Serious: Yes (Hospitalization, Other)
  Sender: FDA-Public Use
  Company Number: None

PATIENT
  Age: 30 Year
  Sex: Female
  Weight: 81.5 kg

DRUGS (1)
  1. DASATINIB [Suspect]
     Active Substance: DASATINIB
     Indication: Chronic myeloid leukaemia
     Route: 048
     Dates: start: 202106, end: 202312

REACTIONS (6)
  - Respiratory syncytial virus infection [Recovering/Resolving]
  - COVID-19 [Recovering/Resolving]
  - Pleural effusion [Recovering/Resolving]
  - Ascites [Not Recovered/Not Resolved]
  - Oedema peripheral [Recovering/Resolving]
  - Generalised oedema [Recovering/Resolving]

NARRATIVE: CASE EVENT DATE: 20231112
